FAERS Safety Report 19614701 (Version 1)
Quarter: 2021Q3

REPORT INFORMATION
  Report Type: Spontaneous
  Country: US (occurrence: US)
  Receive Date: 20210726
  Receipt Date: 20210726
  Transmission Date: 20211014
  Serious: Yes (Hospitalization)
  Sender: FDA-Public Use
  Company Number: None

PATIENT

DRUGS (12)
  1. TOBRAMYCIN 300MG/5ML TOBI GEQ [Suspect]
     Active Substance: TOBRAMYCIN
     Indication: PNEUMONIA PSEUDOMONAL
     Dosage: ?          OTHER DOSE:300MG/5ML;OTHER FREQUENCY:Q12 FOR 14D;OTHER ROUTE:NEBULIZE?
     Dates: start: 20210226
  2. IPRATROPIUM [Concomitant]
     Active Substance: IPRATROPIUM
  3. PANTOPRAZOLE [Concomitant]
     Active Substance: PANTOPRAZOLE
  4. PRAMIPEXOLE. [Concomitant]
     Active Substance: PRAMIPEXOLE
  5. QUETIAPINE. [Concomitant]
     Active Substance: QUETIAPINE
  6. GENTAMICIN. [Concomitant]
     Active Substance: GENTAMICIN
  7. LEVOTHYROXINE. [Concomitant]
     Active Substance: LEVOTHYROXINE
  8. PRASUGREL. [Concomitant]
     Active Substance: PRASUGREL
  9. ASPIRIN. [Concomitant]
     Active Substance: ASPIRIN
  10. ATORVASTATIN [Concomitant]
     Active Substance: ATORVASTATIN
  11. LOSARTAN. [Concomitant]
     Active Substance: LOSARTAN
  12. NOVOLIN NOS [Concomitant]
     Active Substance: INSULIN HUMAN

REACTIONS (2)
  - Clostridium difficile infection [None]
  - Pneumonia [None]
